FAERS Safety Report 10010605 (Version 1)
Quarter: 2014Q1

REPORT INFORMATION
  Report Type: Spontaneous
  Country: DE (occurrence: DE)
  Receive Date: 20140314
  Receipt Date: 20140314
  Transmission Date: 20141002
  Serious: Yes (Other)
  Sender: FDA-Public Use
  Company Number: DE-RANBAXY-2014RR-79033

PATIENT
  Age: 32 Year
  Sex: Female

DRUGS (1)
  1. FLUCONAZOL [Suspect]
     Indication: MASTITIS
     Dosage: 200 MG/DAY
     Route: 065
     Dates: start: 20140125

REACTIONS (11)
  - Hyperhidrosis [Unknown]
  - Gastrointestinal disorder [Unknown]
  - Diarrhoea [Unknown]
  - Decreased appetite [Unknown]
  - Fatigue [Unknown]
  - Pruritus [Unknown]
  - Urticaria [Unknown]
  - Pain of skin [Unknown]
  - Blister [Unknown]
  - Rash pruritic [Unknown]
  - Exposure during breast feeding [Unknown]
